FAERS Safety Report 11692985 (Version 2)
Quarter: 2015Q4

REPORT INFORMATION
  Report Type: Spontaneous
  Country: US (occurrence: US)
  Receive Date: 20151103
  Receipt Date: 20151223
  Transmission Date: 20160304
  Serious: Yes (Other)
  Sender: FDA-Public Use
  Company Number: US-BAYER-2015-452930

PATIENT
  Sex: Female

DRUGS (1)
  1. MIRENA [Suspect]
     Active Substance: LEVONORGESTREL
     Indication: CONTRACEPTION
     Dosage: 20 MCG/24HR, CONT
     Route: 015
     Dates: start: 201408, end: 201510

REACTIONS (17)
  - Dizziness [None]
  - Arthralgia [None]
  - Bone pain [None]
  - Breast tenderness [None]
  - Back pain [None]
  - Menstrual disorder [None]
  - Mood swings [None]
  - Weight increased [None]
  - Mobility decreased [None]
  - Genital haemorrhage [None]
  - Abdominal pain lower [None]
  - Headache [None]
  - Procedural pain [None]
  - Feeling abnormal [None]
  - Suicidal behaviour [None]
  - Depression suicidal [None]
  - Pelvic pain [Not Recovered/Not Resolved]

NARRATIVE: CASE EVENT DATE: 2014
